FAERS Safety Report 22161181 (Version 1)
Quarter: 2023Q1

REPORT INFORMATION
  Report Type: Spontaneous
  Country: ID (occurrence: None)
  Receive Date: 20230331
  Receipt Date: 20230331
  Transmission Date: 20230418
  Serious: Yes (Hospitalization, Other)
  Sender: FDA-Public Use
  Company Number: 2023A072352

PATIENT
  Sex: Male

DRUGS (1)
  1. SYMBICORT [Suspect]
     Active Substance: BUDESONIDE\FORMOTEROL FUMARATE DIHYDRATE
     Indication: Dyspnoea
     Dosage: 160/4.5 MCG/DOSE,1 INHALATION FOR EACH USE, TWICE A DAY, MORNING AND EVENING
     Route: 055

REACTIONS (5)
  - Vision blurred [Not Recovered/Not Resolved]
  - Myalgia [Unknown]
  - Gait disturbance [Unknown]
  - Swelling face [Recovered/Resolved]
  - Device use issue [Unknown]

NARRATIVE: CASE EVENT DATE: 20210101
